FAERS Safety Report 9144620 (Version 1)
Quarter: 2013Q1

REPORT INFORMATION
  Report Type: Spontaneous
  Country: US (occurrence: US)
  Receive Date: 20130306
  Receipt Date: 20130306
  Transmission Date: 20140127
  Serious: Yes (Hospitalization)
  Sender: FDA-Public Use
  Company Number: US-LUNDBECK-DKLU1088487

PATIENT
  Age: 3 Year
  Sex: Female

DRUGS (7)
  1. SABRIL [Suspect]
     Indication: INFANTILE SPASMS
     Route: 048
     Dates: start: 20091211, end: 201202
  2. SABRIL [Suspect]
     Route: 048
     Dates: start: 20130111
  3. SABRIL [Suspect]
     Route: 048
  4. SABRIL [Suspect]
     Route: 048
  5. ONFI [Concomitant]
     Indication: CONVULSION
  6. PHENOBARBITAL [Concomitant]
     Indication: CONVULSION
  7. KEPPRA [Concomitant]
     Indication: CONVULSION

REACTIONS (6)
  - Sepsis [Recovered/Resolved]
  - Pancreatitis [Recovered/Resolved]
  - Acute respiratory failure [Recovered/Resolved]
  - Haemoglobin decreased [Unknown]
  - Pneumonia [Recovered/Resolved]
  - Convulsion [Recovering/Resolving]
